FAERS Safety Report 4946289-1 (Version None)
Quarter: 2006Q1

REPORT INFORMATION
  Report Type: 
  Country: None (occurrence: None)
  Receive Date: 20060316
  Receipt Date: 20060316
  Transmission Date: 20060701
  Serious: Yes (Hospitalization)
  Sender: FDA-Public Use
  Company Number: None

PATIENT
  Age: 65 Year
  Sex: Male
  Weight: 96.6 kg

DRUGS (3)
  1. HEPARIN [Suspect]
     Indication: ENDARTERECTOMY
     Dosage: HEPARIN 5000 UNITS ONE TIME IV
     Route: 042
     Dates: start: 20050923, end: 20050923
  2. CEFAZOLIN [Suspect]
     Dosage: 50 MG ONE TIME IV
     Route: 042
     Dates: start: 20050923, end: 20050923
  3. ROCURONIUM [Suspect]
     Indication: PARALYSIS
     Dosage: ROCURONIUM 80MG ONE TIME IV
     Route: 042
     Dates: start: 20050923

REACTIONS (7)
  - ARTERIAL THROMBOSIS [None]
  - ERYTHEMA [None]
  - HYPOTENSION [None]
  - HYPOXIA [None]
  - PLATELET COUNT DECREASED [None]
  - PROCEDURAL COMPLICATION [None]
  - RESPIRATORY ACIDOSIS [None]
